FAERS Safety Report 7930621-0 (Version None)
Quarter: 2011Q4

REPORT INFORMATION
  Report Type: 
  Country: None (occurrence: None)
  Receive Date: 20111121
  Receipt Date: 20111114
  Transmission Date: 20120403
  Serious: Yes (Life-Threatening, Hospitalization, Other)
  Sender: FDA-Public Use
  Company Number: GB-PFIZER INC-2011049552

PATIENT
  Age: 27 Year
  Sex: Female

DRUGS (1)
  1. PROPRANOLOL HCL [Suspect]
     Dosage: 7G, SINGLE
     Route: 048

REACTIONS (4)
  - PULSELESS ELECTRICAL ACTIVITY [None]
  - INTENTIONAL OVERDOSE [None]
  - CIRCULATORY COLLAPSE [None]
  - GRAND MAL CONVULSION [None]
